FAERS Safety Report 19163770 (Version 1)
Quarter: 2021Q2

REPORT INFORMATION
  Report Type: Spontaneous
  Country: US (occurrence: US)
  Receive Date: 20210420
  Receipt Date: 20210420
  Transmission Date: 20210717
  Serious: No
  Sender: FDA-Public Use
  Company Number: None

PATIENT
  Age: 68 Year
  Sex: Male

DRUGS (1)
  1. INLYTA [Suspect]
     Active Substance: AXITINIB
     Indication: RENAL CANCER
     Route: 048
     Dates: start: 20210331

REACTIONS (4)
  - Dry skin [None]
  - Skin exfoliation [None]
  - Somnolence [None]
  - Decreased appetite [None]

NARRATIVE: CASE EVENT DATE: 20210410
